FAERS Safety Report 9681743 (Version 1)
Quarter: 2013Q4

REPORT INFORMATION
  Report Type: Spontaneous
  Country: IT (occurrence: IT)
  Receive Date: 20131111
  Receipt Date: 20131111
  Transmission Date: 20140711
  Serious: Yes (Hospitalization)
  Sender: FDA-Public Use
  Company Number: IT-BRISTOL-MYERS SQUIBB COMPANY-19720424

PATIENT
  Age: 86 Year
  Sex: Female

DRUGS (5)
  1. CO-EFFERALGAN FILM-COATED TABS 500MG/30MG [Suspect]
     Indication: OSTEOARTHRITIS
     Dosage: TABS
     Route: 048
     Dates: start: 20130915, end: 20131005
  2. SINEMET TABS 25MG/100MG [Suspect]
     Indication: PARKINSON^S DISEASE
     Dosage: 1DF= 2 UNITS NOS.?DRUG INTERRUPTED:06OCT13
     Route: 048
     Dates: start: 20050101
  3. GLUCOBAY [Suspect]
     Indication: DIABETES MELLITUS
     Dosage: 50 MG TABS?1DF= 2 UNITS NOS.?DRUG INTERRUPTED:06OCT13
     Route: 048
     Dates: start: 20120101
  4. CARDIRENE [Concomitant]
     Dosage: 75 MG POWDER FOR ORAL SOLUTION
     Route: 048
  5. LANSOPRAZOLE [Concomitant]
     Dosage: LANSOPRAZOLE ABC ^30 MG CAPS^.

REACTIONS (1)
  - Rhabdomyolysis [Recovering/Resolving]
